FAERS Safety Report 21358928 (Version 2)
Quarter: 2022Q4

REPORT INFORMATION
  Report Type: Other
  Country: CA (occurrence: CA)
  Receive Date: 20220921
  Receipt Date: 20221230
  Transmission Date: 20230113
  Serious: Yes (Life-Threatening, Hospitalization, Other)
  Sender: FDA-Public Use
  Company Number: CA-ASTELLAS-2022US033165

PATIENT
  Age: 5 Year
  Sex: Male
  Weight: 17 kg

DRUGS (6)
  1. TACROLIMUS [Suspect]
     Active Substance: TACROLIMUS
     Indication: Nephrotic syndrome
     Dosage: 1.6 MG, TWICE DAILY (2 EVERY 1 DAY)
     Route: 048
     Dates: start: 20160301, end: 20211205
  2. RITUXIMAB [Suspect]
     Active Substance: RITUXIMAB
     Indication: Nephrotic syndrome
     Dosage: 350 MG, 1 EVERY 6 MONTHS
     Route: 042
     Dates: start: 20211005, end: 20211005
  3. SEPTRA [Suspect]
     Active Substance: SULFAMETHOXAZOLE\TRIMETHOPRIM
     Indication: Product used for unknown indication
     Dosage: 60 MG, THRICE WEEKLY (3 EVERY 1 WEEK)
     Route: 048
  4. SEPTRA [Suspect]
     Active Substance: SULFAMETHOXAZOLE\TRIMETHOPRIM
     Route: 048
     Dates: end: 20211205
  5. AMOXICILLIN [Concomitant]
     Active Substance: AMOXICILLIN
     Indication: Product used for unknown indication
     Route: 048
  6. ACETAMINOPHEN [Concomitant]
     Active Substance: ACETAMINOPHEN
     Indication: Product used for unknown indication
     Dosage: 260 MG, AS NEEDED (EVERY 4 HOURS AS NEEDED)
     Route: 048
     Dates: start: 20211201, end: 20211203

REACTIONS (4)
  - Febrile neutropenia [Recovered/Resolved]
  - General physical health deterioration [Recovered/Resolved]
  - Oral disorder [Recovered/Resolved]
  - Off label use [Unknown]

NARRATIVE: CASE EVENT DATE: 20211127
